FAERS Safety Report 21227271 (Version 2)
Quarter: 2022Q3

REPORT INFORMATION
  Report Type: Spontaneous
  Country: CA (occurrence: None)
  Receive Date: 20220818
  Receipt Date: 20220824
  Transmission Date: 20221026
  Serious: Yes (Disabling)
  Sender: FDA-Public Use
  Company Number: CA-ROCHE-3157563

PATIENT
  Age: 71 Year
  Sex: Female
  Weight: 59.020 kg

DRUGS (1)
  1. AVASTIN [Suspect]
     Active Substance: BEVACIZUMAB
     Indication: Macular degeneration
     Route: 031

REACTIONS (3)
  - Needle issue [Unknown]
  - Product contamination [Unknown]
  - Vitreous floaters [Not Recovered/Not Resolved]
